FAERS Safety Report 25341328 (Version 1)
Quarter: 2025Q2

REPORT INFORMATION
  Report Type: Report from Study
  Country: US (occurrence: US)
  Receive Date: 20250521
  Receipt Date: 20250521
  Transmission Date: 20250717
  Serious: Yes (Hospitalization)
  Sender: MYLAN
  Company Number: US-MYLANLABS-2025M1041127

PATIENT
  Sex: Male

DRUGS (12)
  1. FENTANYL [Suspect]
     Active Substance: FENTANYL
     Indication: Product used for unknown indication
  2. FENTANYL [Suspect]
     Active Substance: FENTANYL
     Route: 065
  3. FENTANYL [Suspect]
     Active Substance: FENTANYL
     Route: 065
  4. FENTANYL [Suspect]
     Active Substance: FENTANYL
  5. BUPRENORPHINE [Suspect]
     Active Substance: BUPRENORPHINE
     Indication: Drug withdrawal syndrome
  6. BUPRENORPHINE [Suspect]
     Active Substance: BUPRENORPHINE
  7. BUPRENORPHINE [Suspect]
     Active Substance: BUPRENORPHINE
     Route: 060
  8. BUPRENORPHINE [Suspect]
     Active Substance: BUPRENORPHINE
     Route: 060
  9. BUPRENORPHINE [Suspect]
     Active Substance: BUPRENORPHINE
  10. BUPRENORPHINE [Suspect]
     Active Substance: BUPRENORPHINE
  11. BUPRENORPHINE [Suspect]
     Active Substance: BUPRENORPHINE
     Route: 060
  12. BUPRENORPHINE [Suspect]
     Active Substance: BUPRENORPHINE
     Route: 060

REACTIONS (2)
  - Drug withdrawal syndrome [Unknown]
  - Condition aggravated [Unknown]
